FAERS Safety Report 10189061 (Version 1)
Quarter: 2014Q2

REPORT INFORMATION
  Report Type: Spontaneous
  Country: US (occurrence: US)
  Receive Date: 20140522
  Receipt Date: 20140522
  Transmission Date: 20141212
  Serious: No
  Sender: FDA-Public Use
  Company Number: US-ASTRAZENECA-2012SE71059

PATIENT
  Age: 73 Year
  Sex: Male
  Weight: 74.2 kg

DRUGS (13)
  1. BUDESONIDE [Suspect]
     Dosage: 0.5MG/2ML UNKNOWN
     Route: 055
  2. SYNTHROID [Concomitant]
     Indication: THYROID DISORDER
  3. LOPRESSOR [Concomitant]
  4. METHOCARBAMOL [Concomitant]
  5. DUONEB [Concomitant]
  6. XANAX [Concomitant]
  7. PROVENTIL [Concomitant]
     Indication: DYSPNOEA
  8. PANTOPRAZOLE SODIUM [Concomitant]
     Indication: GASTRIC DISORDER
  9. THEOPHYLLINE [Concomitant]
     Indication: DYSPNOEA
  10. MECLIZINE [Concomitant]
     Indication: DIZZINESS
  11. SEREVENT [Concomitant]
     Indication: WHEEZING
  12. URECHOLINE [Concomitant]
     Indication: WHEEZING
  13. CLARITINE [Concomitant]
     Indication: MULTIPLE ALLERGIES

REACTIONS (1)
  - Peripheral swelling [Unknown]
